FAERS Safety Report 14856292 (Version 1)
Quarter: 2018Q2

REPORT INFORMATION
  Report Type: Spontaneous
  Country: US (occurrence: US)
  Receive Date: 20180507
  Receipt Date: 20180507
  Transmission Date: 20180711
  Serious: No
  Sender: FDA-Public Use
  Company Number: US-ROCHE-2024924

PATIENT
  Sex: Female

DRUGS (6)
  1. BENZONATATE. [Concomitant]
     Active Substance: BENZONATATE
  2. ZETIA [Concomitant]
     Active Substance: EZETIMIBE
  3. WELLBUTRIN [Concomitant]
     Active Substance: BUPROPION HYDROCHLORIDE
  4. ESBRIET [Suspect]
     Active Substance: PIRFENIDONE
     Indication: IDIOPATHIC PULMONARY FIBROSIS
     Dosage: 3 CAPSULE IN MORNING, 2 IN AFTER NOON, 3 IN EVENING
     Route: 048
     Dates: start: 20170326
  5. MUCINEX D [Concomitant]
     Active Substance: GUAIFENESIN\PSEUDOEPHEDRINE HYDROCHLORIDE
  6. VITAMIN D2 [Concomitant]
     Active Substance: ERGOCALCIFEROL

REACTIONS (2)
  - Nausea [Unknown]
  - Diarrhoea [Unknown]
